FAERS Safety Report 6090987-6 (Version None)
Quarter: 2009Q1

REPORT INFORMATION
  Report Type: 
  Country: None (occurrence: None)
  Receive Date: 20090219
  Receipt Date: 20090219
  Transmission Date: 20090719
  Serious: Yes (Other)
  Sender: FDA-Public Use
  Company Number: None

PATIENT
  Sex: Female
  Weight: 58.9676 kg

DRUGS (2)
  1. ADVAIR DISKUS 250/50 [Suspect]
     Indication: CHRONIC OBSTRUCTIVE PULMONARY DISEASE
     Dosage: 1 INHALATION AM AND PM MOUTH
     Route: 048
     Dates: start: 20040101, end: 20090101
  2. ADVAIR DISKUS 500/50 [Suspect]
     Indication: CHRONIC OBSTRUCTIVE PULMONARY DISEASE
     Dosage: 1 INHALATION AM PM MOUTH
     Route: 048
     Dates: start: 20090101

REACTIONS (3)
  - BONE DENSITY DECREASED [None]
  - DYSPNOEA [None]
  - RESORPTION BONE INCREASED [None]
